FAERS Safety Report 12161240 (Version 4)
Quarter: 2016Q3

REPORT INFORMATION
  Report Type: Spontaneous
  Country: US (occurrence: US)
  Receive Date: 20160308
  Receipt Date: 20160930
  Transmission Date: 20161109
  Serious: Yes (Other)
  Sender: FDA-Public Use
  Company Number: PHEH2016US005161

PATIENT
  Sex: Female
  Weight: 47.17 kg

DRUGS (10)
  1. VITAMIN D [Concomitant]
     Active Substance: CHOLECALCIFEROL
     Indication: PRODUCT USED FOR UNKNOWN INDICATION
     Route: 065
  2. ASA [Concomitant]
     Active Substance: ASPIRIN
     Indication: PRODUCT USED FOR UNKNOWN INDICATION
     Route: 065
  3. RIVASTIGMINE. [Suspect]
     Active Substance: RIVASTIGMINE
     Dosage: (PATCH 15(CM2)
     Route: 062
     Dates: start: 201410
  4. LORAZEPAM. [Concomitant]
     Active Substance: LORAZEPAM
     Indication: SLEEP DISORDER
     Dosage: 1/4MG AT NIGHT
     Route: 065
     Dates: start: 201602
  5. NAMENDA [Concomitant]
     Active Substance: MEMANTINE HYDROCHLORIDE
     Indication: PRODUCT USED FOR UNKNOWN INDICATION
     Route: 065
  6. ATENOLOL. [Concomitant]
     Active Substance: ATENOLOL
     Indication: BLOOD PRESSURE MEASUREMENT
     Dosage: 25 MG, QD
     Route: 065
     Dates: start: 1990
  7. DIVALPROEX [Concomitant]
     Active Substance: DIVALPROEX SODIUM
     Indication: SLEEP DISORDER
     Dosage: 125 MG, QD
     Route: 065
     Dates: start: 20160722, end: 20160811
  8. LEVOTHYROXINE. [Concomitant]
     Active Substance: LEVOTHYROXINE
     Indication: THYROID DISORDER
     Dosage: 75 MG, QD
     Route: 065
     Dates: start: 1973
  9. RIVASTIGMINE. [Suspect]
     Active Substance: RIVASTIGMINE
     Indication: DEMENTIA
     Dosage: (PATCH 5 (CM2)
     Route: 062
     Dates: start: 2011, end: 201410
  10. SYNTHROID [Concomitant]
     Active Substance: LEVOTHYROXINE SODIUM
     Indication: PRODUCT USED FOR UNKNOWN INDICATION
     Route: 065

REACTIONS (15)
  - Incontinence [Recovered/Resolved]
  - Altered state of consciousness [Unknown]
  - Dysphagia [Unknown]
  - Dyskinesia [Unknown]
  - Constipation [Unknown]
  - Fall [Unknown]
  - Seizure [Unknown]
  - Choking [Unknown]
  - Hypotonia [Unknown]
  - Dehydration [Unknown]
  - Dysstasia [Unknown]
  - Application site erythema [Recovered/Resolved]
  - Transient ischaemic attack [Unknown]
  - Pain [Unknown]
  - Product use issue [Unknown]
